FAERS Safety Report 20532642 (Version 1)
Quarter: 2022Q1

REPORT INFORMATION
  Report Type: Spontaneous
  Country: TW (occurrence: TW)
  Receive Date: 20220301
  Receipt Date: 20220301
  Transmission Date: 20220423
  Serious: Yes (Hospitalization)
  Sender: FDA-Public Use
  Company Number: TW-ELI_LILLY_AND_COMPANY-TW202202008002

PATIENT
  Sex: Male

DRUGS (4)
  1. CYRAMZA [Suspect]
     Active Substance: RAMUCIRUMAB
     Indication: Lung carcinoma cell type unspecified stage III
     Dosage: UNK UNK, CYCLICAL
     Route: 065
     Dates: start: 20210304
  2. CYRAMZA [Suspect]
     Active Substance: RAMUCIRUMAB
     Dosage: 600 MG, CYCLICAL
     Route: 065
     Dates: start: 20211230
  3. DACOMITINIB [Suspect]
     Active Substance: DACOMITINIB
     Indication: Lung carcinoma cell type unspecified stage III
     Dosage: 15 MG, UNKNOWN
     Route: 065
     Dates: start: 20211013
  4. DACOMITINIB [Suspect]
     Active Substance: DACOMITINIB
     Dosage: 30 MG, DAILY
     Route: 065
     Dates: start: 20211021

REACTIONS (3)
  - Paronychia [Unknown]
  - Onychalgia [Unknown]
  - Diarrhoea [Unknown]
